FAERS Safety Report 9925148 (Version 1)
Quarter: 2014Q1

REPORT INFORMATION
  Report Type: Report from Study
  Country: DE (occurrence: CO)
  Receive Date: 20140226
  Receipt Date: 20140226
  Transmission Date: 20141002
  Serious: Yes (Hospitalization)
  Sender: FDA-Public Use
  Company Number: DE-ACTELION-A-NJ2014-95426

PATIENT
  Sex: Male

DRUGS (1)
  1. VENTAVIS [Suspect]
     Indication: PULMONARY HYPERTENSION
     Dosage: 6 TIMES A DAY
     Route: 065
     Dates: start: 20130918, end: 20140201

REACTIONS (1)
  - Mitral valve repair [Unknown]
